FAERS Safety Report 20162094 (Version 1)
Quarter: 2021Q4

REPORT INFORMATION
  Report Type: Other
  Country: GB (occurrence: GB)
  Receive Date: 20211208
  Receipt Date: 20211208
  Transmission Date: 20220303
  Serious: Yes (Hospitalization, Other)
  Sender: FDA-Public Use
  Company Number: Genus_Lifesciences-USA_POI058202100135

PATIENT
  Age: 72 Year
  Sex: Female

DRUGS (1)
  1. TIVORBEX [Suspect]
     Active Substance: INDOMETHACIN
     Indication: Back pain
     Dosage: UNKNOWN
     Dates: end: 2021

REACTIONS (1)
  - Pharyngeal haematoma [Recovered/Resolved]

NARRATIVE: CASE EVENT DATE: 20210101
